FAERS Safety Report 4368992-7 (Version None)
Quarter: 2004Q2

REPORT INFORMATION
  Report Type: 
  Country: None (occurrence: None)
  Receive Date: 20040525
  Receipt Date: 20040512
  Transmission Date: 20050107
  Serious: Yes (Hospitalization)
  Sender: FDA-Public Use
  Company Number: GB-JNJFOC-20040502131

PATIENT
  Age: 54 Year
  Sex: Male

DRUGS (6)
  1. REMICADE [Suspect]
     Indication: RHEUMATOID ARTHRITIS
     Dosage: 273 MG, INTRAVENOUS
     Route: 042
     Dates: start: 20020820, end: 20031201
  2. PREDNISONE [Concomitant]
  3. VIOXX [Concomitant]
  4. METHOTREXATE [Concomitant]
  5. FOLIC ACID (FOLIC AICD) [Concomitant]
  6. DIHYDROCODEINE (HIHYDROCODEINE) [Concomitant]

REACTIONS (1)
  - TENDON RUPTURE [None]
